FAERS Safety Report 9626739 (Version 7)
Quarter: 2014Q4

REPORT INFORMATION
  Report Type: Report from Study
  Country: JP (occurrence: JP)
  Receive Date: 20131016
  Receipt Date: 20141117
  Transmission Date: 20150529
  Serious: Yes (Hospitalization)
  Sender: FDA-Public Use
  Company Number: JP-AMGEN-JPNCT2013070905

PATIENT
  Age: 84 Year
  Sex: Female
  Weight: 58.5 kg

DRUGS (16)
  1. REVLIMID [Concomitant]
     Active Substance: LENALIDOMIDE
     Dosage: UNK
     Dates: start: 20130517, end: 20130926
  2. ARTIST [Concomitant]
     Active Substance: CARVEDILOL
     Dosage: 10 MG, UNK
     Route: 048
     Dates: start: 20120720, end: 20130920
  3. LIVALO [Concomitant]
     Active Substance: PITAVASTATIN CALCIUM
     Dosage: 2 MG, UNK
     Route: 048
     Dates: start: 20120720, end: 20130927
  4. DENOSUMAB [Suspect]
     Active Substance: DENOSUMAB
     Indication: PLASMA CELL MYELOMA
     Dosage: 120 MG, UNK
     Route: 065
     Dates: start: 20120817, end: 20131011
  5. PANTOSIN [Concomitant]
     Active Substance: PANTETHINE
     Dosage: 1 G, UNK
     Route: 048
     Dates: start: 20120725, end: 20130927
  6. BAYASPIRIN [Concomitant]
     Active Substance: ASPIRIN
     Dosage: 100 MG, UNK
     Route: 048
     Dates: start: 20130517, end: 20130927
  7. ADJUST-A [Concomitant]
     Active Substance: SENNA LEAF\SENNOSIDES\SENNOSIDES A AND B
     Dosage: 120-160 MG, UNK
     Route: 048
     Dates: start: 20130823, end: 20130927
  8. VITAMIN D                          /00107901/ [Concomitant]
     Active Substance: ERGOCALCIFEROL
     Dosage: 400 IU, UNK
     Route: 048
     Dates: start: 20120817, end: 20130927
  9. AMLODIN [Concomitant]
     Active Substance: AMLODIPINE BESYLATE
     Dosage: 5 MG, UNK
     Route: 048
     Dates: start: 20120720, end: 20130823
  10. LENADEX [Concomitant]
     Active Substance: DEXAMETHASONE ACETATE
     Dosage: UNK
     Dates: start: 20130517, end: 20130921
  11. MAGMITT [Concomitant]
     Active Substance: MAGNESIUM OXIDE
     Dosage: 330 MG, UNK
     Route: 048
     Dates: start: 20120822, end: 20130927
  12. LAXOBERON [Concomitant]
     Active Substance: SODIUM PICOSULFATE
     Dosage: 1.34 ML, UNK
     Route: 048
     Dates: start: 20130823, end: 20130927
  13. PREMINENT [Concomitant]
     Active Substance: HYDROCHLOROTHIAZIDE\LOSARTAN POTASSIUM
     Dosage: 1 UNK, UNK
     Route: 048
     Dates: start: 20120720, end: 20130913
  14. CALCIUM [Concomitant]
     Active Substance: CALCIUM
     Dosage: 610 MG, UNK
     Route: 048
     Dates: start: 20120817, end: 20130927
  15. OXYCONTIN [Concomitant]
     Active Substance: OXYCODONE HYDROCHLORIDE
     Dosage: 5 MG, UNK
     Route: 048
     Dates: start: 20120731, end: 20130927
  16. ALDACTONE [Concomitant]
     Active Substance: SPIRONOLACTONE
     Dosage: 1 UNK, UNK
     Route: 048
     Dates: start: 20130914, end: 20130920

REACTIONS (2)
  - Colon cancer [Recovered/Resolved]
  - Large intestinal obstruction [Recovered/Resolved]

NARRATIVE: CASE EVENT DATE: 20130927
